FAERS Safety Report 24821195 (Version 3)
Quarter: 2025Q1

REPORT INFORMATION
  Report Type: Spontaneous
  Country: US (occurrence: US)
  Receive Date: 20250108
  Receipt Date: 20250124
  Transmission Date: 20250408
  Serious: No
  Sender: SANOFI AVENTIS
  Company Number: US-SA-2025SA004452

PATIENT
  Age: 61 Year
  Sex: Female
  Weight: 88.64 kg

DRUGS (5)
  1. DUPIXENT [Suspect]
     Active Substance: DUPILUMAB
     Indication: Dermatitis atopic
     Dosage: 300 MG, QOW
     Route: 058
  2. XARELTO [Concomitant]
     Active Substance: RIVAROXABAN
  3. ZOLOFT [Concomitant]
     Active Substance: SERTRALINE HYDROCHLORIDE
  4. WELLBUTRIN SR [Concomitant]
     Active Substance: BUPROPION HYDROCHLORIDE
     Dosage: SR 12H
  5. EBGLYSS [Concomitant]
     Active Substance: LEBRIKIZUMAB-LBKZ
     Indication: Dermatitis atopic

REACTIONS (1)
  - Treatment failure [Unknown]
